FAERS Safety Report 8214040-8 (Version None)
Quarter: 2012Q1

REPORT INFORMATION
  Report Type: 
  Country: None (occurrence: None)
  Receive Date: 20120314
  Receipt Date: 20120314
  Transmission Date: 20120608
  Serious: Yes (Hospitalization)
  Sender: FDA-Public Use
  Company Number: None

PATIENT
  Age: 74 Year
  Sex: Male
  Weight: 86.002 kg

DRUGS (19)
  1. DIOVAN [Concomitant]
  2. HYDROCHLOROTHIAZIDE [Concomitant]
  3. EMLA [Concomitant]
  4. GLYBURIDE AND METFORMIN HYDROCHLORIDE [Concomitant]
  5. JANUVIA [Concomitant]
  6. PANITUMUMAB IND# 108311 [Suspect]
     Indication: BILE DUCT CANCER
     Dosage: 6MG/KG DAY1+15OF CYCLE IV
     Route: 042
     Dates: start: 20120214
  7. LACTULOSE [Concomitant]
  8. MINOCYCLINE HCL [Concomitant]
  9. OMEPRAZOLE [Concomitant]
  10. PROCHLORPERAZINE MALEATE [Concomitant]
  11. OXALIPLATIN [Suspect]
     Indication: BILE DUCT CANCER
     Dosage: 85MG/M2 DAY1+15OFCYCLE IV
     Route: 042
     Dates: start: 20120214
  12. OXYCODONE HCL [Concomitant]
  13. ZOFRAN [Concomitant]
  14. GEMCITABINE [Suspect]
     Indication: BILE DUCT CANCER
     Dosage: 1000MG/M2 DAY1+15OFCYCIV
     Route: 042
     Dates: start: 20120214
  15. ACTOS [Concomitant]
  16. SIMVASTATIN [Concomitant]
  17. ATIVAN [Concomitant]
  18. CLINDAMYCIN [Concomitant]
  19. ZETIA [Concomitant]

REACTIONS (6)
  - MENTAL STATUS CHANGES [None]
  - METABOLIC DISORDER [None]
  - HYPOPHAGIA [None]
  - HYPOGLYCAEMIA [None]
  - RENAL FAILURE [None]
  - DEPRESSED LEVEL OF CONSCIOUSNESS [None]
